FAERS Safety Report 15470806 (Version 2)
Quarter: 2021Q1

REPORT INFORMATION
  Report Type: Spontaneous
  Country: US (occurrence: US)
  Receive Date: 20181005
  Receipt Date: 20210214
  Transmission Date: 20210419
  Serious: No
  Sender: FDA-Public Use
  Company Number: US-ELI_LILLY_AND_COMPANY-US201809012877

PATIENT
  Age: 30 Year
  Sex: Female

DRUGS (7)
  1. CYMBALTA [Suspect]
     Active Substance: DULOXETINE HYDROCHLORIDE
     Dosage: 120 MG, DAILY
     Route: 048
  2. CYMBALTA [Suspect]
     Active Substance: DULOXETINE HYDROCHLORIDE
     Dosage: 30 MG, OTHER  (WEDNESDAYS, SATURDAYS, AND SUNDAYS)
     Route: 048
  3. EMGALITY [Concomitant]
     Active Substance: GALCANEZUMAB-GNLM
     Indication: HEADACHE
     Dosage: UNK, UNKNOWN
  4. CYMBALTA [Suspect]
     Active Substance: DULOXETINE HYDROCHLORIDE
     Dosage: 60 MG, DAILY
     Route: 048
  5. GABAPENTIN. [Concomitant]
     Active Substance: GABAPENTIN
     Indication: PRODUCT USED FOR UNKNOWN INDICATION
  6. DULOXETINE HYDROCHLORIDE. [Suspect]
     Active Substance: DULOXETINE HYDROCHLORIDE
     Indication: MIGRAINE
     Dosage: 120 MG, DAILY
     Route: 048
  7. CYMBALTA [Suspect]
     Active Substance: DULOXETINE HYDROCHLORIDE
     Indication: MIGRAINE
     Dosage: 120 MG, DAILY
     Route: 048

REACTIONS (3)
  - Off label use [Unknown]
  - Headache [Not Recovered/Not Resolved]
  - Migraine [Recovered/Resolved]

NARRATIVE: CASE EVENT DATE: 20180927
